FAERS Safety Report 17412744 (Version 10)
Quarter: 2020Q3

REPORT INFORMATION
  Report Type: Report from Study
  Country: US (occurrence: US)
  Receive Date: 20200213
  Receipt Date: 20200803
  Transmission Date: 20201102
  Serious: No
  Sender: FDA-Public Use
  Company Number: NVSC2020US036539

PATIENT
  Age: 88 Year
  Sex: Female

DRUGS (2)
  1. BEOVU [Suspect]
     Active Substance: BROLUCIZUMAB-DBLL
     Dosage: UNK
     Route: 047
     Dates: start: 20191124
  2. BEOVU [Suspect]
     Active Substance: BROLUCIZUMAB-DBLL
     Indication: NEOVASCULAR AGE-RELATED MACULAR DEGENERATION
     Dosage: UNK
     Route: 047
     Dates: start: 20191223

REACTIONS (16)
  - Stress [Unknown]
  - Ocular hyperaemia [Unknown]
  - Presbyopia [Unknown]
  - Visual impairment [Unknown]
  - Restlessness [Unknown]
  - General physical health deterioration [Unknown]
  - Injection site pain [Recovered/Resolved]
  - Insomnia [Unknown]
  - Eye pain [Unknown]
  - Visual acuity reduced [Unknown]
  - Metamorphopsia [Unknown]
  - Diplopia [Unknown]
  - Injection site reaction [Recovered/Resolved]
  - Photopsia [Unknown]
  - Foreign body sensation in eyes [Recovered/Resolved]
  - Vitreous floaters [Unknown]

NARRATIVE: CASE EVENT DATE: 20200124
